FAERS Safety Report 7047015-5 (Version None)
Quarter: 2010Q4

REPORT INFORMATION
  Report Type: 
  Country: None (occurrence: None)
  Receive Date: 20101015
  Receipt Date: 20101005
  Transmission Date: 20110411
  Serious: Yes (Other)
  Sender: FDA-Public Use
  Company Number: IT-JNJFOC-20101002539

PATIENT
  Age: 41 Year
  Sex: Male

DRUGS (2)
  1. REMICADE [Suspect]
     Indication: BEHCET'S SYNDROME
     Route: 042
  2. REMICADE [Suspect]
     Dosage: AT WEEKS 0, 2, 6, AND 8
     Route: 042

REACTIONS (1)
  - ALOPECIA UNIVERSALIS [None]
